FAERS Safety Report 8384918-3 (Version None)
Quarter: 2012Q2

REPORT INFORMATION
  Report Type: 
  Country: None (occurrence: None)
  Receive Date: 20120524
  Receipt Date: 20120521
  Transmission Date: 20120825
  Serious: Yes (Other)
  Sender: FDA-Public Use
  Company Number: US-PFIZER INC-2012123374

PATIENT
  Sex: Female
  Weight: 102 kg

DRUGS (2)
  1. LAMICTAL [Concomitant]
     Dosage: UNK
  2. ZOLOFT [Suspect]
     Indication: BIPOLAR DISORDER
     Dosage: 200 MG, 1X/DAY
     Route: 048
     Dates: start: 19960101

REACTIONS (2)
  - MUSCLE STRAIN [None]
  - RIB FRACTURE [None]
